FAERS Safety Report 4861008-5 (Version None)
Quarter: 2005Q4

REPORT INFORMATION
  Report Type: 
  Country: None (occurrence: None)
  Receive Date: 20051220
  Receipt Date: 20050810
  Transmission Date: 20060501
  Serious: No
  Sender: FDA-Public Use
  Company Number: US-GLAXOSMITHKLINE-A0569698A

PATIENT
  Age: 14 Year
  Sex: Female

DRUGS (2)
  1. TAGAMET [Suspect]
     Indication: PEPTIC ULCER
     Dosage: 800MG THREE TIMES PER DAY
     Route: 048
  2. NO CONCURRENT MEDICATION [Concomitant]

REACTIONS (1)
  - GALACTORRHOEA [None]
